FAERS Safety Report 5082784-5 (Version None)
Quarter: 2006Q3

REPORT INFORMATION
  Report Type: 
  Country: None (occurrence: None)
  Receive Date: 20060817
  Receipt Date: 20060808
  Transmission Date: 20061208
  Serious: Yes (Death, Hospitalization, Other)
  Sender: FDA-Public Use
  Company Number: AU-NOVOPROD-255999

PATIENT
  Age: 34 Year
  Sex: Male
  Weight: 110 kg

DRUGS (2)
  1. NOVOSEVEN [Suspect]
     Indication: HAEMORRHAGE
     Dosage: 10.8 MG, UNK
     Route: 042
     Dates: start: 20041104
  2. NOVOSEVEN [Suspect]
     Dosage: 10.8 UNK, UNK
     Dates: start: 20040411

REACTIONS (3)
  - DISSEMINATED INTRAVASCULAR COAGULATION [None]
  - PERICARDIAL EFFUSION [None]
  - RENAL INFARCT [None]
